FAERS Safety Report 21350970 (Version 3)
Quarter: 2022Q4

REPORT INFORMATION
  Report Type: Report from Study
  Country: FR (occurrence: FR)
  Receive Date: 20220919
  Receipt Date: 20221027
  Transmission Date: 20230113
  Serious: Yes (Other)
  Sender: FDA-Public Use
  Company Number: FR-GILEAD-2022-0564198

PATIENT
  Sex: Female
  Weight: 64 kg

DRUGS (5)
  1. SACITUZUMAB GOVITECAN [Suspect]
     Active Substance: SACITUZUMAB GOVITECAN
     Indication: Triple negative breast cancer
     Dosage: 640 MG (C1D1 AND C1D8); INTERRUPTED ON 13-DEC-2021
     Route: 065
     Dates: start: 20211122, end: 20211129
  2. SACITUZUMAB GOVITECAN [Suspect]
     Active Substance: SACITUZUMAB GOVITECAN
     Dosage: 640 MG (C2D1 AND C2D8)
     Route: 065
     Dates: start: 20211220, end: 20211227
  3. SACITUZUMAB GOVITECAN [Suspect]
     Active Substance: SACITUZUMAB GOVITECAN
     Dosage: 10 MG/KG (C3D1 AND C3D8)
     Route: 042
     Dates: start: 20220210, end: 20220222
  4. SACITUZUMAB GOVITECAN [Suspect]
     Active Substance: SACITUZUMAB GOVITECAN
     Dosage: 10 MG/KG (C4D1 AND C4D8)
     Route: 042
     Dates: start: 20220310, end: 20220317
  5. SACITUZUMAB GOVITECAN [Suspect]
     Active Substance: SACITUZUMAB GOVITECAN
     Dosage: 8 MG/KG (C5D1 AND C5D8)
     Route: 042
     Dates: start: 20220331, end: 20220407

REACTIONS (7)
  - Cell death [Recovered/Resolved]
  - Cell death [Recovered/Resolved]
  - Asthenia [Recovered/Resolved]
  - Asthenia [Recovered/Resolved]
  - COVID-19 [Recovered/Resolved]
  - Off label use [Unknown]
  - Inappropriate schedule of product administration [Recovered/Resolved]

NARRATIVE: CASE EVENT DATE: 20220101
